FAERS Safety Report 5638516-2 (Version None)
Quarter: 2008Q1

REPORT INFORMATION
  Report Type: 
  Country: None (occurrence: None)
  Receive Date: 20080226
  Receipt Date: 20070305
  Transmission Date: 20080703
  Serious: No
  Sender: FDA-Public Use
  Company Number: A0642139A

PATIENT
  Sex: Male

DRUGS (2)
  1. IMITREX [Suspect]
     Indication: MIGRAINE
     Route: 065
  2. FIORICET [Concomitant]
     Indication: MIGRAINE
     Dosage: 3TAB AS REQUIRED
     Route: 048

REACTIONS (1)
  - MIGRAINE [None]
